FAERS Safety Report 4272573-3 (Version None)
Quarter: 2004Q1

REPORT INFORMATION
  Report Type: 
  Country: None (occurrence: None)
  Receive Date: 20040114
  Receipt Date: 20040114
  Transmission Date: 20041129
  Serious: Yes (Disabling)
  Sender: FDA-Public Use
  Company Number: None

PATIENT
  Sex: Male
  Weight: 68.0396 kg

DRUGS (1)
  1. ALPRAZOLAM [Suspect]
     Indication: ANXIETY
     Dosage: 1 MG 3X PER DAY ORAL
     Route: 048
     Dates: start: 19950401, end: 20030530

REACTIONS (49)
  - ABDOMINAL PAIN UPPER [None]
  - AMNESIA [None]
  - ANGER [None]
  - ANHEDONIA [None]
  - ANOSMIA [None]
  - ARTHRALGIA [None]
  - ATROPHY [None]
  - BACK PAIN [None]
  - BLADDER PAIN [None]
  - BURNING SENSATION [None]
  - CONSTIPATION [None]
  - COORDINATION ABNORMAL [None]
  - COUGH [None]
  - DECREASED APPETITE [None]
  - DENTAL DISCOMFORT [None]
  - DISINHIBITION [None]
  - DRUG WITHDRAWAL SYNDROME [None]
  - DYSARTHRIA [None]
  - EPISTAXIS [None]
  - ERECTILE DYSFUNCTION [None]
  - FEELING ABNORMAL [None]
  - FLUSHING [None]
  - HEADACHE [None]
  - INAPPROPRIATE AFFECT [None]
  - INFLUENZA LIKE ILLNESS [None]
  - IRRITABILITY [None]
  - LOSS OF LIBIDO [None]
  - MEMORY IMPAIRMENT [None]
  - MUSCLE SPASMS [None]
  - MUSCLE TWITCHING [None]
  - MUSCULAR WEAKNESS [None]
  - NERVOUSNESS [None]
  - PAIN [None]
  - PALPITATIONS [None]
  - PANIC ATTACK [None]
  - PAROSMIA [None]
  - PENIS DISORDER [None]
  - PERSONALITY CHANGE [None]
  - PHOTOPHOBIA [None]
  - PRURITUS [None]
  - RESTLESSNESS [None]
  - SENSATION OF PRESSURE IN EAR [None]
  - SENSORY DISTURBANCE [None]
  - SUICIDAL IDEATION [None]
  - TINNITUS [None]
  - TREMOR [None]
  - URINARY INCONTINENCE [None]
  - VISION BLURRED [None]
  - WEIGHT DECREASED [None]
